FAERS Safety Report 9700168 (Version 2)
Quarter: 2013Q4

REPORT INFORMATION
  Report Type: Report from Study
  Country: BR (occurrence: BR)
  Receive Date: 20131121
  Receipt Date: 20131121
  Transmission Date: 20140711
  Serious: Yes (Other)
  Sender: FDA-Public Use
  Company Number: BR-US-EMD SERONO, INC.-7218423

PATIENT
  Age: 60 Year
  Sex: Female

DRUGS (7)
  1. REBIF [Suspect]
     Indication: RELAPSING-REMITTING MULTIPLE SCLEROSIS
     Dates: start: 20130418, end: 201310
  2. PHENYTOIN [Concomitant]
     Indication: CONVULSION
  3. CAPTOPRIL [Concomitant]
     Indication: MULTIPLE SCLEROSIS
  4. AAS [Concomitant]
     Indication: PRODUCT USED FOR UNKNOWN INDICATION
  5. BACLOFEN [Concomitant]
     Indication: MULTIPLE SCLEROSIS
  6. SINVASTATINA MEPHA [Concomitant]
     Indication: MULTIPLE SCLEROSIS
  7. GARDENAL                           /00023201/ [Concomitant]
     Indication: CONVULSION

REACTIONS (5)
  - Convulsion [Recovered/Resolved]
  - Fatigue [Recovered/Resolved]
  - Multiple sclerosis relapse [Unknown]
  - Communication disorder [Unknown]
  - Drug ineffective [Unknown]
